FAERS Safety Report 6096700-0 (Version None)
Quarter: 2009Q1

REPORT INFORMATION
  Report Type: 
  Country: None (occurrence: None)
  Receive Date: 20090227
  Receipt Date: 20090217
  Transmission Date: 20090719
  Serious: Yes (Hospitalization)
  Sender: FDA-Public Use
  Company Number: DE-ABBOTT-09P-062-0558582-00

PATIENT
  Sex: Female

DRUGS (7)
  1. HUMIRA [Suspect]
     Indication: RHEUMATOID ARTHRITIS
     Route: 058
     Dates: start: 20070101, end: 20090123
  2. ARCOXIA [Concomitant]
     Indication: PAIN
  3. ACTONEL [Concomitant]
     Indication: OSTEOPOROSIS
  4. CA 2+ [Concomitant]
     Indication: OSTEOPOROSIS
  5. BELOC ZOK [Concomitant]
     Indication: DRUG USE FOR UNKNOWN INDICATION
  6. FORMOTOP [Concomitant]
     Indication: BRONCHITIS
  7. KATADOLON [Concomitant]
     Indication: PAIN

REACTIONS (1)
  - ROTATOR CUFF SYNDROME [None]
